FAERS Safety Report 16896507 (Version 1)
Quarter: 2019Q4

REPORT INFORMATION
  Report Type: Spontaneous
  Country: GB (occurrence: GB)
  Receive Date: 20191008
  Receipt Date: 20191008
  Transmission Date: 20200122
  Serious: Yes (Other)
  Sender: FDA-Public Use
  Company Number: GB-MYLANLABS-2019M1094005

PATIENT
  Age: 54 Year
  Sex: Male

DRUGS (1)
  1. HYDRALAZINE [Suspect]
     Active Substance: HYDRALAZINE HYDROCHLORIDE
     Indication: HYPERTENSION
     Dosage: 25 MILLIGRAM, 19 IN TOTAL
     Route: 065
     Dates: start: 2019

REACTIONS (7)
  - Panic attack [Unknown]
  - Loss of consciousness [Unknown]
  - Dyspnoea [Unknown]
  - Blood pressure fluctuation [Unknown]
  - Heart rate increased [Unknown]
  - Product dispensing error [Unknown]
  - Disorientation [Unknown]

NARRATIVE: CASE EVENT DATE: 20190521
